FAERS Safety Report 19226489 (Version 2)
Quarter: 2021Q3

REPORT INFORMATION
  Report Type: Spontaneous
  Country: PR (occurrence: PR)
  Receive Date: 20210506
  Receipt Date: 20210712
  Transmission Date: 20211014
  Serious: Yes (Other)
  Sender: FDA-Public Use
  Company Number: PR-BAYER-2021-135755

PATIENT
  Age: 85 Year
  Sex: Female

DRUGS (2)
  1. NEXAVAR [Suspect]
     Active Substance: SORAFENIB
     Indication: HEPATOCELLULAR CARCINOMA
     Dosage: 200 MG, BID
     Route: 048
     Dates: start: 20210412
  2. NEXAVAR [Suspect]
     Active Substance: SORAFENIB
     Indication: HEPATOCELLULAR CARCINOMA
     Dosage: 200 MG, BID
     Route: 048

REACTIONS (7)
  - Abdominal discomfort [None]
  - Decreased appetite [None]
  - Unevaluable event [None]
  - Bedridden [Unknown]
  - Bone pain [None]
  - Asthenia [None]
  - Off label use [None]

NARRATIVE: CASE EVENT DATE: 20210412
